FAERS Safety Report 18087384 (Version 1)
Quarter: 2020Q3

REPORT INFORMATION
  Report Type: Spontaneous
  Country: US (occurrence: US)
  Receive Date: 20200729
  Receipt Date: 20200729
  Transmission Date: 20201103
  Serious: No
  Sender: FDA-Public Use
  Company Number: US-BAUSCH-BL-2020-020474

PATIENT
  Age: 62 Year
  Sex: Female

DRUGS (2)
  1. GLUMETZA [Suspect]
     Active Substance: METFORMIN HYDROCHLORIDE
     Indication: TYPE 2 DIABETES MELLITUS
     Dosage: 1 TABLET IN THE MORNING AND 2 TABLETS IN THE EVENING STARTED MORE THAN 10 YEARS AGO
     Route: 048
     Dates: end: 202007
  2. GLUMETZA [Suspect]
     Active Substance: METFORMIN HYDROCHLORIDE
     Dosage: STARTED ABOUT A WEEK AGO; EXTENDED?RELEASE
     Route: 048
     Dates: start: 202007, end: 20200713

REACTIONS (3)
  - Abdominal discomfort [Unknown]
  - Vomiting [Recovered/Resolved]
  - Nausea [Recovered/Resolved]

NARRATIVE: CASE EVENT DATE: 2020
